FAERS Safety Report 5490929-8 (Version None)
Quarter: 2007Q4

REPORT INFORMATION
  Report Type: 
  Country: None (occurrence: None)
  Receive Date: 20071019
  Receipt Date: 20071009
  Transmission Date: 20080405
  Serious: Yes (Death, Other)
  Sender: FDA-Public Use
  Company Number: CO-PFIZER INC-2007085727

PATIENT
  Sex: Male

DRUGS (2)
  1. LIPITOR [Suspect]
     Indication: HYPERLIPIDAEMIA
     Route: 048
     Dates: start: 20040924, end: 20071004
  2. ACURETIC [Suspect]
     Indication: HYPERTENSION
     Route: 048
     Dates: start: 20040924, end: 20071004

REACTIONS (4)
  - ERYTHEMA [None]
  - FALL [None]
  - HYPOAESTHESIA [None]
  - SUDDEN DEATH [None]
